FAERS Safety Report 6036486-9 (Version None)
Quarter: 2009Q1

REPORT INFORMATION
  Report Type: 
  Country: None (occurrence: None)
  Receive Date: 20090112
  Receipt Date: 20090102
  Transmission Date: 20090719
  Serious: Yes (Hospitalization, Other)
  Sender: FDA-Public Use
  Company Number: GXKR2009GB00458

PATIENT
  Sex: Female

DRUGS (8)
  1. MYCOPHENOLATE MOFETIL [Suspect]
     Dosage: 750 MG, BID; 250 MG QID
     Dates: start: 20080919
  2. ARANESP [Suspect]
     Indication: NEPHROGENIC ANAEMIA
     Dosage: 20 UG, QW, SUBCUTANEOUS, 40 UG, QW; SUBCUTANEOUS, 60 UG, QW, SUBCUTANEOUS, SUBCUTANEOUS
     Route: 058
     Dates: start: 20060601, end: 20070826
  3. ARANESP [Suspect]
     Indication: NEPHROGENIC ANAEMIA
     Dosage: 20 UG, QW, SUBCUTANEOUS, 40 UG, QW; SUBCUTANEOUS, 60 UG, QW, SUBCUTANEOUS, SUBCUTANEOUS
     Route: 058
     Dates: start: 20081016, end: 20081109
  4. ARANESP [Suspect]
     Indication: NEPHROGENIC ANAEMIA
     Dosage: 20 UG, QW, SUBCUTANEOUS, 40 UG, QW; SUBCUTANEOUS, 60 UG, QW, SUBCUTANEOUS, SUBCUTANEOUS
     Route: 058
     Dates: start: 20081110, end: 20081123
  5. ARANESP [Suspect]
     Indication: NEPHROGENIC ANAEMIA
     Dosage: 20 UG, QW, SUBCUTANEOUS, 40 UG, QW; SUBCUTANEOUS, 60 UG, QW, SUBCUTANEOUS, SUBCUTANEOUS
     Route: 058
     Dates: start: 20081124, end: 20081201
  6. EPREX [Suspect]
     Indication: NEPHROGENIC ANAEMIA
     Dosage: 120000 IU, QW; INTRAVENOUS, 10000 IU, QW; INTRAVENOUS
     Route: 042
     Dates: start: 20080207, end: 20080313
  7. EPREX [Suspect]
     Indication: NEPHROGENIC ANAEMIA
     Dosage: 120000 IU, QW; INTRAVENOUS, 10000 IU, QW; INTRAVENOUS
     Route: 042
     Dates: start: 20080314, end: 20080917
  8. TACROLIMUS [Suspect]
     Indication: NEPHROGENIC ANAEMIA
     Dosage: 3.5 MG, 205 MG, BID, BID; 3.5 MG, QD, 3 MG, QD;
     Dates: start: 20080919

REACTIONS (5)
  - APLASIA PURE RED CELL [None]
  - DRUG INEFFECTIVE [None]
  - DRUG SPECIFIC ANTIBODY ABSENT [None]
  - HAEMODIALYSIS [None]
  - RENAL TRANSPLANT [None]
